FAERS Safety Report 9365792 (Version 2)
Quarter: 2013Q3

REPORT INFORMATION
  Report Type: Spontaneous
  Country: US (occurrence: US)
  Receive Date: 20130625
  Receipt Date: 20130731
  Transmission Date: 20140515
  Serious: Yes (Other)
  Sender: FDA-Public Use
  Company Number: US-TEVA-413788USA

PATIENT
  Age: 43 Year
  Sex: Female
  Weight: 121.22 kg

DRUGS (1)
  1. PARAGARD 380A [Suspect]
     Indication: CONTRACEPTION
     Route: 015
     Dates: start: 20130204, end: 20130617

REACTIONS (4)
  - Urinary tract infection [Unknown]
  - Pelvic pain [Unknown]
  - Dyspareunia [Unknown]
  - Device expulsion [Recovered/Resolved]
